FAERS Safety Report 22616222 (Version 1)
Quarter: 2023Q2

REPORT INFORMATION
  Report Type: Spontaneous
  Country: US (occurrence: US)
  Receive Date: 20230619
  Receipt Date: 20230619
  Transmission Date: 20230722
  Serious: Yes (Hospitalization, Other)
  Sender: FDA-Public Use
  Company Number: US-AMGEN-USASP2023102970

PATIENT

DRUGS (7)
  1. XGEVA [Suspect]
     Active Substance: DENOSUMAB
     Indication: Bone disorder
     Dosage: 125 MILLIGRAM, QMO
     Route: 065
     Dates: start: 202210
  2. FASLODEX [Concomitant]
     Active Substance: FULVESTRANT
     Indication: Bone cancer metastatic
     Dosage: 250 MILLIGRAM, QD
     Dates: start: 202210
  3. FASLODEX [Concomitant]
     Active Substance: FULVESTRANT
     Dosage: UNK UNK, QD
     Dates: start: 202301
  4. LEVOTHYROXINE SODIUM [Concomitant]
     Active Substance: LEVOTHYROXINE SODIUM
     Indication: Thyroid disorder
     Dosage: 50 MICROGRAM, QD
     Dates: start: 1994
  5. LOSARTAN POTASSIUM [Concomitant]
     Active Substance: LOSARTAN POTASSIUM
     Dosage: UNK
     Dates: start: 2000
  6. INSULIN HUMAN [Concomitant]
     Active Substance: INSULIN HUMAN
     Dosage: 100 MICROGRAM PER MILLIGRAM
     Dates: start: 1994
  7. ATORVASTATIN [Concomitant]
     Active Substance: ATORVASTATIN
     Dosage: 10 MILLIGRAM, QD
     Dates: start: 2020

REACTIONS (2)
  - Escherichia sepsis [Recovered/Resolved]
  - Acute kidney injury [Recovered/Resolved]
